FAERS Safety Report 6435782-0 (Version None)
Quarter: 2009Q4

REPORT INFORMATION
  Report Type: 
  Country: None (occurrence: None)
  Receive Date: 20091111
  Receipt Date: 20091110
  Transmission Date: 20100525
  Serious: No
  Sender: FDA-Public Use
  Company Number: US-BAYER-200916279BCC

PATIENT
  Sex: Female

DRUGS (1)
  1. DESONATE GEL [Suspect]
     Indication: RASH
     Route: 061
     Dates: start: 20090728, end: 20090811

REACTIONS (2)
  - SKIN ATROPHY [None]
  - SKIN DISCOLOURATION [None]
